FAERS Safety Report 4554945-2 (Version None)
Quarter: 2004Q4

REPORT INFORMATION
  Report Type: 
  Country: None (occurrence: None)
  Receive Date: 20041222
  Receipt Date: 20041026
  Transmission Date: 20050328
  Serious: Yes (Hospitalization)
  Sender: FDA-Public Use
  Company Number: 209977

PATIENT
  Age: 70 Year
  Sex: Female

DRUGS (15)
  1. AVASTIN [Suspect]
     Indication: COLORECTAL CANCER METASTATIC
     Dosage: SEE IMAGE,  INTRAVENOUS
     Route: 042
     Dates: start: 20040713
  2. AVASTIN [Suspect]
     Indication: COLORECTAL CANCER METASTATIC
     Dosage: SEE IMAGE,  INTRAVENOUS
     Route: 042
     Dates: start: 20040727
  3. NEULASTA [Concomitant]
  4. OXALIPLATIN [Concomitant]
  5. FLUOROURACIL [Concomitant]
  6. LEUCOVORIN CALCIUM [Concomitant]
  7. ATACAND [Concomitant]
  8. CLONIDIN-HCL (CLONIDINE HYDROCHLORIDE) [Concomitant]
  9. FUROSEMIDE TAB (FUROSEMIDE) [Concomitant]
  10. LESCOL [Concomitant]
  11. VICODIN (HYDROCODONE BITARTRATE, ACETAMINOPHEN) [Concomitant]
  12. DEXAMETHASONE [Concomitant]
  13. ALOXI (PALONOSETRON) [Concomitant]
  14. MAGNESIUM SULPHATE (MAGNESIUM SULFATE) [Concomitant]
  15. CALCIUM GLUCONATE [Concomitant]

REACTIONS (1)
  - LARGE INTESTINE PERFORATION [None]
